FAERS Safety Report 7798614-4 (Version None)
Quarter: 2011Q4

REPORT INFORMATION
  Report Type: 
  Country: None (occurrence: None)
  Receive Date: 20111005
  Receipt Date: 20110930
  Transmission Date: 20120403
  Serious: Yes (Hospitalization)
  Sender: FDA-Public Use
  Company Number: US-GILEAD-2011-0043377

PATIENT

DRUGS (1)
  1. LETAIRIS [Suspect]
     Indication: PRODUCT USED FOR UNKNOWN INDICATION
     Dosage: 5 MG, UNK
     Route: 048
     Dates: start: 20080102

REACTIONS (5)
  - DIARRHOEA [None]
  - ELECTROLYTE IMBALANCE [None]
  - ABDOMINAL PAIN [None]
  - HOSPITALISATION [None]
  - DYSPNOEA [None]
